FAERS Safety Report 8914087 (Version 1)
Quarter: 2012Q4

REPORT INFORMATION
  Report Type: 
  Country: US (occurrence: US)
  Receive Date: 20121116
  Receipt Date: 20121116
  Transmission Date: 20130627
  Serious: Yes (Hospitalization)
  Sender: FDA-Public Use
  Company Number: US-VERTEX PHARMACEUTICAL INC.-2012-024497

PATIENT
  Age: 56 Year
  Sex: Male

DRUGS (3)
  1. VX-950 (TELAPREVIR) [Suspect]
     Indication: HEPATITIS C
     Dosage: 750 mg, tid
     Route: 048
     Dates: start: 2012, end: 20121108
  2. RIBASPHERE [Suspect]
     Indication: HEPATITIS C
     Dosage: 200 mg, bid
     Route: 048
     Dates: start: 2012, end: 20121108
  3. PEGASYS [Suspect]
     Indication: HEPATITIS C
     Dosage: 180 UNK, qw
     Route: 058
     Dates: start: 2012, end: 20121108

REACTIONS (3)
  - Sepsis [Unknown]
  - Pain [Unknown]
  - Platelet count decreased [Unknown]
